FAERS Safety Report 9920182 (Version 1)
Quarter: 2014Q1

REPORT INFORMATION
  Report Type: Spontaneous
  Country: US (occurrence: US)
  Receive Date: 20140224
  Receipt Date: 20140224
  Transmission Date: 20141002
  Serious: Yes (Other)
  Sender: FDA-Public Use
  Company Number: US-BAXTER-2011BH011287

PATIENT
  Sex: Male

DRUGS (1)
  1. [PSS GPN] FEIBA VH [Suspect]
     Indication: HAEMOPHILIA
     Route: 065
     Dates: start: 1997

REACTIONS (1)
  - Factor VIII inhibition [Not Recovered/Not Resolved]
